FAERS Safety Report 20949603 (Version 2)
Quarter: 2022Q3

REPORT INFORMATION
  Report Type: Other
  Country: US (occurrence: US)
  Receive Date: 20220613
  Receipt Date: 20220707
  Transmission Date: 20221027
  Serious: No
  Sender: FDA-Public Use
  Company Number: US-DECIPHERA PHARMACEUTICALS LLC-2022US000459

PATIENT
  Sex: Male

DRUGS (2)
  1. QINLOCK [Suspect]
     Active Substance: RIPRETINIB
     Indication: Gastrointestinal stromal tumour
     Dosage: 100 MILLIGRAM, QD
     Route: 048
  2. QINLOCK [Suspect]
     Active Substance: RIPRETINIB
     Dosage: 100 MILLIGRAM, QD
     Route: 048

REACTIONS (7)
  - Balance disorder [Unknown]
  - Chest discomfort [Unknown]
  - Dizziness [Unknown]
  - Asthenia [Unknown]
  - Dyspepsia [Unknown]
  - Fatigue [Unknown]
  - Underdose [Unknown]

NARRATIVE: CASE EVENT DATE: 20220603
